FAERS Safety Report 7020835-9 (Version None)
Quarter: 2010Q3

REPORT INFORMATION
  Report Type: 
  Country: None (occurrence: None)
  Receive Date: 20100929
  Receipt Date: 20100917
  Transmission Date: 20110219
  Serious: Yes (Other)
  Sender: FDA-Public Use
  Company Number: GR-PFIZER INC-2010117872

PATIENT
  Age: 19 Year
  Sex: Male

DRUGS (1)
  1. VIBRAMYCIN [Suspect]
     Indication: ACNE
     Dosage: 100 MG, 2X/DAY
     Route: 048
     Dates: start: 20100907

REACTIONS (1)
  - OCULAR HYPERTENSION [None]
